FAERS Safety Report 7249863-5 (Version None)
Quarter: 2011Q1

REPORT INFORMATION
  Report Type: 
  Country: None (occurrence: None)
  Receive Date: 20110119
  Receipt Date: 20110119
  Transmission Date: 20110831
  Serious: Yes (Life-Threatening)
  Sender: FDA-Public Use
  Company Number: None

PATIENT
  Age: 76 Year
  Sex: Male
  Weight: 73.4827 kg

DRUGS (7)
  1. SIMVASTATIN [Concomitant]
  2. BYSTOLIC [Concomitant]
  3. ISOSORBIDE DINITRATE [Concomitant]
  4. ALBUTEROL NEBS KCL [Concomitant]
  5. ASPIRIN [Concomitant]
  6. EFFIENT [Suspect]
     Indication: CORONARY ARTERIAL STENT INSERTION
     Dosage: 10MG QD PO
     Route: 048
     Dates: start: 20101206, end: 20110113
  7. RESTORIL [Concomitant]

REACTIONS (4)
  - HAEMOPTYSIS [None]
  - HEADACHE [None]
  - EPISTAXIS [None]
  - HAEMATOCHEZIA [None]
